FAERS Safety Report 19086893 (Version 4)
Quarter: 2021Q4

REPORT INFORMATION
  Report Type: Report from Study
  Country: US (occurrence: US)
  Receive Date: 20210402
  Receipt Date: 20211203
  Transmission Date: 20220303
  Serious: Yes (Hospitalization, Other)
  Sender: FDA-Public Use
  Company Number: NVSC2021US069118

PATIENT
  Age: 87 Year
  Sex: Female

DRUGS (1)
  1. ENTRESTO [Suspect]
     Active Substance: SACUBITRIL\VALSARTAN
     Indication: Cardiac failure
     Dosage: 100 MG, BID
     Route: 048
     Dates: start: 202101

REACTIONS (12)
  - Heart rate decreased [Recovering/Resolving]
  - Memory impairment [Unknown]
  - Blood potassium abnormal [Unknown]
  - Gastrooesophageal reflux disease [Unknown]
  - Illness [Unknown]
  - Decreased appetite [Unknown]
  - Tympanic membrane perforation [Unknown]
  - Arthritis [Unknown]
  - Osteoarthritis [Unknown]
  - Cardiac stress test abnormal [Unknown]
  - Seasonal allergy [Unknown]
  - Nasal congestion [Unknown]

NARRATIVE: CASE EVENT DATE: 20210301
